FAERS Safety Report 8601946-0 (Version None)
Quarter: 2012Q3

REPORT INFORMATION
  Report Type: 
  Country: None (occurrence: None)
  Receive Date: 20120817
  Receipt Date: 20120605
  Transmission Date: 20120928
  Serious: Yes (Other)
  Sender: FDA-Public Use
  Company Number: US-BRISTOL-MYERS SQUIBB COMPANY-16664450

PATIENT
  Age: 54 Year
  Sex: Female

DRUGS (1)
  1. SPRYCEL [Suspect]
     Dosage: LAST DOSE 05JUN2012
     Dates: start: 20120524

REACTIONS (3)
  - RASH GENERALISED [None]
  - HEADACHE [None]
  - BONE PAIN [None]
